FAERS Safety Report 25265160 (Version 1)
Quarter: 2025Q2

REPORT INFORMATION
  Report Type: Spontaneous
  Country: FR (occurrence: FR)
  Receive Date: 20250502
  Receipt Date: 20250502
  Transmission Date: 20250716
  Serious: Yes (Other)
  Sender: MYLAN
  Company Number: None

PATIENT
  Age: 26 Year
  Sex: Female
  Weight: 60 kg

DRUGS (4)
  1. SPIRONOLACTONE [Suspect]
     Active Substance: SPIRONOLACTONE
     Indication: Acne
     Dosage: 50 MILLIGRAM, QD
     Dates: start: 20250324, end: 20250324
  2. SPIRONOLACTONE [Suspect]
     Active Substance: SPIRONOLACTONE
     Dosage: 50 MILLIGRAM, QD
     Route: 048
     Dates: start: 20250324, end: 20250324
  3. SPIRONOLACTONE [Suspect]
     Active Substance: SPIRONOLACTONE
     Dosage: 50 MILLIGRAM, QD
     Route: 048
     Dates: start: 20250324, end: 20250324
  4. SPIRONOLACTONE [Suspect]
     Active Substance: SPIRONOLACTONE
     Dosage: 50 MILLIGRAM, QD
     Dates: start: 20250324, end: 20250324

REACTIONS (2)
  - Anaphylactoid reaction [Recovered/Resolved]
  - Product use in unapproved indication [Recovered/Resolved]

NARRATIVE: CASE EVENT DATE: 20250324
